FAERS Safety Report 4370931-X (Version None)
Quarter: 2004Q2

REPORT INFORMATION
  Report Type: 
  Country: None (occurrence: None)
  Receive Date: 20040601
  Receipt Date: 20040525
  Transmission Date: 20050107
  Serious: Yes (Other)
  Sender: FDA-Public Use
  Company Number: 30019365-NA01-1

PATIENT
  Age: 73 Year
  Sex: Male
  Weight: 62.2 kg

DRUGS (11)
  1. ANB0155 - ICODEXTRIN (EXTRANEAL) 7.5% [Suspect]
     Indication: PERITONEAL DIALYSIS
     Dosage: 7.5% ICODEXTRIN 1.5L QD IP
     Dates: start: 20040329
  2. DIANEAL  PD2 [Concomitant]
  3. GUANABENZ ACETATE [Concomitant]
  4. TELMISARTAN [Concomitant]
  5. CILNIDIPINE [Concomitant]
  6. ALLOPURINOL [Concomitant]
  7. ATORVASTATIN CALCIUM HYDRATE [Concomitant]
  8. AMLODIPINE BESYLATE [Concomitant]
  9. D-CHLORPHENIRAMINE MALEATE [Concomitant]
  10. EPINASTINE HYDROCHLORIDE [Concomitant]
  11. GLIMEPIRIDE [Concomitant]

REACTIONS (3)
  - CONDITION AGGRAVATED [None]
  - DEPRESSED LEVEL OF CONSCIOUSNESS [None]
  - HYPONATRAEMIA [None]
